FAERS Safety Report 7012356-4 (Version None)
Quarter: 2010Q3

REPORT INFORMATION
  Report Type: 
  Country: None (occurrence: None)
  Receive Date: 20100924
  Receipt Date: 20100913
  Transmission Date: 20110219
  Serious: Yes (Hospitalization)
  Sender: FDA-Public Use
  Company Number: PHHY2010FR61607

PATIENT
  Sex: Male

DRUGS (6)
  1. TEGRETOL [Suspect]
     Indication: TRIGEMINAL NEURALGIA
     Dosage: 200 MG AT TWO TABLETS DAILY
     Route: 048
     Dates: start: 20091201
  2. TEGRETOL [Suspect]
     Indication: PAIN
     Dosage: 200 MG DAILY
     Route: 048
     Dates: start: 20091201
  3. PREVISCAN [Concomitant]
     Dosage: 20 MG
  4. SOLUPRED [Concomitant]
     Dosage: UNK
  5. OGASTRO [Concomitant]
     Dosage: UNK
  6. DUPHALAC [Concomitant]
     Dosage: UNK

REACTIONS (8)
  - ANTICONVULSANT DRUG LEVEL INCREASED [None]
  - ASTHENIA [None]
  - BRADYPHRENIA [None]
  - FATIGUE [None]
  - GENERAL PHYSICAL CONDITION ABNORMAL [None]
  - INCORRECT DOSE ADMINISTERED [None]
  - INFECTION [None]
  - SOMNOLENCE [None]
